FAERS Safety Report 13928153 (Version 1)
Quarter: 2017Q3

REPORT INFORMATION
  Report Type: Spontaneous
  Country: DE (occurrence: DE)
  Receive Date: 20170901
  Receipt Date: 20170901
  Transmission Date: 20171127
  Serious: Yes (Other)
  Sender: FDA-Public Use
  Company Number: PHHY2017DE125030

PATIENT
  Sex: Female

DRUGS (1)
  1. ENTRESTO [Suspect]
     Active Substance: SACUBITRIL\VALSARTAN
     Indication: PRODUCT USED FOR UNKNOWN INDICATION
     Dosage: UNK
     Route: 065

REACTIONS (43)
  - Blood pH increased [Unknown]
  - Prothrombin time prolonged [Unknown]
  - Interleukin level increased [Unknown]
  - Fibrin degradation products increased [Unknown]
  - Aspartate aminotransferase increased [Unknown]
  - International normalised ratio increased [Unknown]
  - Blood bilirubin increased [Unknown]
  - Blood alkaline phosphatase increased [Unknown]
  - Troponin T increased [Unknown]
  - Platelet count decreased [Unknown]
  - Mean platelet volume increased [Unknown]
  - Blood glucose increased [Unknown]
  - Blood potassium increased [Unknown]
  - Blood creatinine increased [Unknown]
  - Blood urea increased [Unknown]
  - Glomerular filtration rate increased [Unknown]
  - Subacute endocarditis [Unknown]
  - Protein total increased [Unknown]
  - Haematocrit decreased [Unknown]
  - Blood thyroid stimulating hormone increased [Unknown]
  - Blood sodium increased [Unknown]
  - Blood calcium decreased [Unknown]
  - Red cell distribution width decreased [Unknown]
  - Oxygen saturation decreased [Unknown]
  - C-reactive protein increased [Unknown]
  - Monocyte count increased [Unknown]
  - Eosinophil count decreased [Unknown]
  - Red blood cell count decreased [Unknown]
  - PCO2 increased [Unknown]
  - Blood potassium decreased [Unknown]
  - Gamma-glutamyltransferase increased [Unknown]
  - N-terminal prohormone brain natriuretic peptide increased [Unknown]
  - Blood albumin decreased [Unknown]
  - Granulocyte count increased [Unknown]
  - Haemoglobin decreased [Unknown]
  - Lymphocyte count decreased [Unknown]
  - Eosinophil count increased [Unknown]
  - Blood bicarbonate increased [Unknown]
  - Vitamin B12 increased [Unknown]
  - Tri-iodothyronine free decreased [Unknown]
  - Alanine aminotransferase increased [Unknown]
  - PO2 decreased [Unknown]
  - Carbon dioxide decreased [Unknown]

NARRATIVE: CASE EVENT DATE: 20170726
